FAERS Safety Report 8306881-3 (Version None)
Quarter: 2012Q2

REPORT INFORMATION
  Report Type: 
  Country: None (occurrence: None)
  Receive Date: 20120420
  Receipt Date: 20120412
  Transmission Date: 20120825
  Serious: Yes (Hospitalization)
  Sender: FDA-Public Use
  Company Number: 2012SP019349

PATIENT
  Age: 55 Year
  Sex: Male

DRUGS (15)
  1. CENTRUM [Concomitant]
  2. PEGINTERFERON ALFA-2B [Suspect]
     Indication: HEPATITIS C
     Dosage: 0.5 ML, UNK
     Dates: start: 20111228
  3. BLINDED MK-5172 [Suspect]
     Indication: HEPATITIS C
     Dosage: UNK
     Dates: start: 20111228
  4. BLINDED SCH 503034 [Suspect]
     Indication: HEPATITIS C
     Dosage: UNK
     Dates: start: 20120127
  5. RIBAVIRIN [Suspect]
     Indication: HEPATITIS C
     Dosage: 3 DF, UNK,QAM,QPM
     Dates: start: 20111228, end: 20111228
  6. RIBAVIRIN [Suspect]
     Indication: HEPATITIS C
     Dosage: 3 DF, UNK,QAM,QPM
     Dates: start: 20120307, end: 20120320
  7. RIBAVIRIN [Suspect]
     Indication: HEPATITIS C
     Dosage: 3 DF, UNK,QAM,QPM
     Dates: start: 20120225, end: 20120304
  8. RIBAVIRIN [Suspect]
     Indication: HEPATITIS C
     Dosage: 3 DF, UNK,QAM,QPM
     Dates: start: 20120320, end: 20120320
  9. RIBAVIRIN [Suspect]
     Indication: HEPATITIS C
     Dosage: 3 DF, UNK,QAM,QPM
     Dates: start: 20120306, end: 20120308
  10. RIBAVIRIN [Suspect]
     Indication: HEPATITIS C
     Dosage: 3 DF, UNK,QAM,QPM
     Dates: start: 20111229, end: 20111229
  11. RIBAVIRIN [Suspect]
     Indication: HEPATITIS C
     Dosage: 3 DF, UNK,QAM,QPM
     Dates: start: 20120305, end: 20120305
  12. RIBAVIRIN [Suspect]
     Indication: HEPATITIS C
     Dosage: 3 DF, UNK,QAM,QPM
     Dates: start: 20120309, end: 20120319
  13. RIBAVIRIN [Suspect]
     Indication: HEPATITIS C
     Dosage: 3 DF, UNK,QAM,QPM
     Dates: start: 20111229, end: 20120224
  14. RIBAVIRIN [Suspect]
     Indication: HEPATITIS C
     Dosage: 3 DF, UNK,QAM,QPM
     Dates: start: 20120224, end: 20120306
  15. SYNTHROID [Concomitant]

REACTIONS (2)
  - DEEP VEIN THROMBOSIS [None]
  - ANAEMIA [None]
